FAERS Safety Report 15514902 (Version 1)
Quarter: 2018Q4

REPORT INFORMATION
  Report Type: Spontaneous
  Country: FR (occurrence: FR)
  Receive Date: 20181017
  Receipt Date: 20181017
  Transmission Date: 20190205
  Serious: Yes (Hospitalization)
  Sender: FDA-Public Use
  Company Number: FR-TEVA-2018-FR-964833

PATIENT
  Age: 79 Year
  Sex: Male
  Weight: 95 kg

DRUGS (15)
  1. BISOCE [Concomitant]
     Active Substance: BISOPROLOL
     Route: 065
  2. ALLOPURINOL. [Suspect]
     Active Substance: ALLOPURINOL
     Indication: PRODUCT USED FOR UNKNOWN INDICATION
     Dosage: 200 MILLIGRAM DAILY;
     Route: 048
     Dates: start: 201802, end: 20180903
  3. NORSET [Concomitant]
     Active Substance: MIRTAZAPINE
     Route: 065
  4. OGASTORO [Concomitant]
     Active Substance: LANSOPRAZOLE
     Route: 065
  5. VOGALENE [Concomitant]
     Active Substance: METOPIMAZINE
     Route: 065
  6. EPINITRIL [Concomitant]
     Active Substance: NITROGLYCERIN
     Route: 065
  7. DUPHALAC [Concomitant]
     Active Substance: LACTULOSE
     Route: 065
  8. LIPANTHYL 160 MG, COMPRIM? PELLICUL? [Suspect]
     Active Substance: FENOFIBRATE
     Indication: DYSLIPIDAEMIA
     Dosage: 160 MILLIGRAM DAILY;
     Route: 048
     Dates: start: 201802, end: 20180903
  9. SPECIAFOLDINE [Concomitant]
     Active Substance: FOLIC ACID
     Route: 065
  10. CORVASAL [Concomitant]
     Route: 065
  11. PARACETAMOL [Concomitant]
     Active Substance: ACETAMINOPHEN
     Route: 065
  12. LEXOMIL ROCHE [Concomitant]
     Active Substance: BROMAZEPAM
     Route: 065
  13. STAGID 700 MG, COMPRIM? S?CABLE [Suspect]
     Active Substance: METFORMIN PAMOATE
     Indication: TYPE 2 DIABETES MELLITUS
     Dosage: 1400 MILLIGRAM DAILY;
     Route: 048
     Dates: start: 201806, end: 20180903
  14. KARDEGIC [Concomitant]
     Active Substance: ASPIRIN DL-LYSINE
     Route: 065
  15. NICORANDIL [Concomitant]
     Active Substance: NICORANDIL
     Route: 065

REACTIONS (1)
  - Pancreatitis acute [Recovering/Resolving]

NARRATIVE: CASE EVENT DATE: 20180903
